FAERS Safety Report 10510256 (Version 1)
Quarter: 2014Q4

REPORT INFORMATION
  Report Type: Spontaneous
  Country: US (occurrence: None)
  Receive Date: 20141008
  Receipt Date: 20141008
  Transmission Date: 20150528
  Serious: Yes (Hospitalization)
  Sender: FDA-Public Use
  Company Number: FK201403815

PATIENT
  Age: 9 Year
  Sex: Female

DRUGS (1)
  1. CLINDAMYCIN [Suspect]
     Active Substance: CLINDAMYCIN\CLINDAMYCIN PHOSPHATE
     Indication: PHARYNGITIS STREPTOCOCCAL

REACTIONS (5)
  - Septic shock [None]
  - Muscle necrosis [None]
  - Syncope [None]
  - Clostridium difficile colitis [None]
  - Colitis ischaemic [None]
